FAERS Safety Report 16721906 (Version 5)
Quarter: 2019Q4

REPORT INFORMATION
  Report Type: Report from Study
  Country: US (occurrence: US)
  Receive Date: 20190820
  Receipt Date: 20191111
  Transmission Date: 20200122
  Serious: Yes (Death, Hospitalization, Other)
  Sender: FDA-Public Use
  Company Number: US-ACTELION-A-NJ2019-190020

PATIENT
  Age: 51 Year
  Sex: Female
  Weight: 61.22 kg

DRUGS (10)
  1. UPTRAVI [Suspect]
     Active Substance: SELEXIPAG
     Dosage: 800 MCG, BID
     Route: 048
  2. UPTRAVI [Suspect]
     Active Substance: SELEXIPAG
     Dosage: 1000 MCG QAM. 1200 MCG IN THE EVENING
     Route: 048
  3. VELETRI [Concomitant]
     Active Substance: EPOPROSTENOL
     Indication: PULMONARY ARTERIAL HYPERTENSION
  4. ADEMPAS [Concomitant]
     Active Substance: RIOCIGUAT
     Dosage: 2.5 MG, TID
     Dates: start: 201811
  5. OMEPRAZOLE. [Concomitant]
     Active Substance: OMEPRAZOLE
     Indication: DYSPEPSIA
  6. AMLODIPINE [Concomitant]
     Active Substance: AMLODIPINE BESYLATE
  7. PREDNISONE. [Concomitant]
     Active Substance: PREDNISONE
     Dosage: UNK
     Dates: start: 20181126
  8. UPTRAVI [Suspect]
     Active Substance: SELEXIPAG
     Indication: PULMONARY HYPERTENSION
     Dosage: 1200 MCG, BID
     Route: 048
     Dates: start: 20190423, end: 20191027
  9. UPTRAVI [Suspect]
     Active Substance: SELEXIPAG
     Dosage: UNK
     Route: 048
     Dates: start: 20181129
  10. OXYGEN. [Concomitant]
     Active Substance: OXYGEN

REACTIONS (57)
  - Pulseless electrical activity [Not Recovered/Not Resolved]
  - Bundle branch block right [Unknown]
  - Ischaemic hepatitis [Unknown]
  - Hypotension [Unknown]
  - Pulmonary hypertension [Recovered/Resolved]
  - Chest pain [Recovered/Resolved]
  - Unevaluable event [Unknown]
  - Paraesthesia [Unknown]
  - Abdominal pain upper [Unknown]
  - Weight decreased [Unknown]
  - Decreased appetite [Unknown]
  - Condition aggravated [Unknown]
  - Rash [Unknown]
  - Atrial fibrillation [Not Recovered/Not Resolved]
  - Haemoglobin decreased [Unknown]
  - Abdominal distension [Unknown]
  - Dizziness [Unknown]
  - Asthenia [Unknown]
  - Anaemia [Unknown]
  - Product dose omission [Unknown]
  - Bradycardia [Not Recovered/Not Resolved]
  - Disseminated intravascular coagulation [Unknown]
  - Hospitalisation [Unknown]
  - Nausea [Unknown]
  - Vomiting [Unknown]
  - Cough [Unknown]
  - Scleroderma [Unknown]
  - Pain in extremity [Unknown]
  - Abdominal discomfort [Unknown]
  - Pericardial drainage [Unknown]
  - Metabolic acidosis [Unknown]
  - Infection parasitic [Unknown]
  - Peripheral swelling [Unknown]
  - Sinus congestion [Unknown]
  - Fatigue [Unknown]
  - Infection [Unknown]
  - Skin discolouration [Unknown]
  - Dyspepsia [Unknown]
  - Small intestinal obstruction [Recovered/Resolved]
  - Chest discomfort [Unknown]
  - Pericardial effusion [Recovered/Resolved]
  - Respiratory alkalosis [Unknown]
  - Haemorrhage [Unknown]
  - Transfusion [Unknown]
  - Helminthic infection [Unknown]
  - Diarrhoea [Recovered/Resolved]
  - Constipation [Recovered/Resolved]
  - Productive cough [Unknown]
  - Dyspnoea [Fatal]
  - Transplant evaluation [Unknown]
  - Peripheral coldness [Unknown]
  - Respiratory acidosis [Unknown]
  - Haematocrit decreased [Unknown]
  - Gastroenteritis [Unknown]
  - Malaise [Unknown]
  - Nasopharyngitis [Unknown]
  - Food poisoning [Unknown]

NARRATIVE: CASE EVENT DATE: 20190418
